FAERS Safety Report 6941310-3 (Version None)
Quarter: 2010Q3

REPORT INFORMATION
  Report Type: 
  Country: None (occurrence: None)
  Receive Date: 20100825
  Receipt Date: 20100818
  Transmission Date: 20110219
  Serious: Yes (Other)
  Sender: FDA-Public Use
  Company Number: US-JNJFOC-20100202601

PATIENT
  Sex: Female
  Weight: 119.3 kg

DRUGS (6)
  1. TYLENOL (CAPLET) [Suspect]
     Route: 048
  2. TYLENOL (CAPLET) [Suspect]
     Indication: ARTHRALGIA
     Route: 048
  3. DIOVAN [Concomitant]
     Indication: HYPERTENSION
  4. ASPIRIN [Concomitant]
     Indication: CARDIAC DISORDER
  5. SYNTHROID [Concomitant]
     Indication: THYROID DISORDER
  6. ZANTAC [Concomitant]

REACTIONS (12)
  - ABDOMINAL PAIN [None]
  - ABDOMINAL PAIN LOWER [None]
  - BREAST PAIN [None]
  - DIARRHOEA [None]
  - DIVERTICULITIS [None]
  - NAUSEA [None]
  - PELVIC PAIN [None]
  - PRODUCT QUALITY ISSUE [None]
  - STRESS URINARY INCONTINENCE [None]
  - URGE INCONTINENCE [None]
  - VITAMIN D DEFICIENCY [None]
  - VULVOVAGINAL PAIN [None]
